FAERS Safety Report 10785121 (Version 1)
Quarter: 2015Q1

REPORT INFORMATION
  Report Type: Spontaneous
  Country: LI (occurrence: LI)
  Receive Date: 20150211
  Receipt Date: 20150211
  Transmission Date: 20150721
  Serious: Yes (Other)
  Sender: FDA-Public Use
  Company Number: LI-JNJFOC-20150202261

PATIENT

DRUGS (1)
  1. RIVAROXABAN [Suspect]
     Active Substance: RIVAROXABAN
     Indication: ARTHROSCOPY
     Route: 048

REACTIONS (2)
  - Off label use [Unknown]
  - Pulmonary embolism [Unknown]
